FAERS Safety Report 16911631 (Version 1)
Quarter: 2019Q4

REPORT INFORMATION
  Report Type: Report from Study
  Country: US (occurrence: US)
  Receive Date: 20191013
  Receipt Date: 20191013
  Transmission Date: 20200122
  Serious: Yes (Hospitalization, Other)
  Sender: FDA-Public Use
  Company Number: US-GILEAD-2019-0432616

PATIENT
  Age: 11 Year
  Sex: Female

DRUGS (1)
  1. AZTREONAM LYSINE [Suspect]
     Active Substance: AZTREONAM LYSINE
     Indication: CYSTIC FIBROSIS
     Dosage: INHALE 1 VIAL VIA NEBULIZER THREE TIMES DAILY FOR 28 DAYS AND RECULTURE
     Route: 055
     Dates: start: 20190225

REACTIONS (1)
  - Condition aggravated [Recovering/Resolving]

NARRATIVE: CASE EVENT DATE: 20191009
